FAERS Safety Report 8696516 (Version 4)
Quarter: 2012Q4

REPORT INFORMATION
  Report Type: Spontaneous
  Country: US (occurrence: None)
  Receive Date: 20120716
  Receipt Date: 20120824
  Transmission Date: 20130627
  Serious: Yes (Hospitalization, Other)
  Sender: FDA-Public Use
  Company Number: 2012-000524

PATIENT
  Age: 58 Year
  Sex: Female
  Weight: 68.9 kg

DRUGS (3)
  1. ACTONEL [Suspect]
     Dosage: DISAGE / FREQUENCY UNKNOWN, ORAL
     Route: 048
  2. FOSAMAX [Suspect]
     Dosage: 70 MG ONCE WEEKLY, ORAL
     Route: 048
     Dates: start: 20040630, end: 2011
  3. FOSAMAX PLUS D [Suspect]
     Indication: OSTEOPENIA
     Dosage: 70 MG, 1/WEEK, ORAL
     Route: 048
     Dates: start: 20061016

REACTIONS (4)
  - FEMUR FRACTURE [None]
  - Pathological fracture [None]
  - FALL [None]
  - PAIN IN EXTREMITY [None]
